FAERS Safety Report 21497399 (Version 1)
Quarter: 2022Q4

REPORT INFORMATION
  Report Type: Report from Study
  Country: US (occurrence: US)
  Receive Date: 20221023
  Receipt Date: 20221023
  Transmission Date: 20230113
  Serious: Yes (Other)
  Sender: FDA-Public Use
  Company Number: US-BoehringerIngelheim-2022-BI-189936

PATIENT
  Age: 47 Year
  Sex: Male

DRUGS (1)
  1. OFEV [Suspect]
     Active Substance: NINTEDANIB
     Indication: Idiopathic pulmonary fibrosis
     Route: 048
     Dates: start: 20220614

REACTIONS (4)
  - Systemic lupus erythematosus [Unknown]
  - Dizziness [Unknown]
  - Diarrhoea [Unknown]
  - Cough [Unknown]
